FAERS Safety Report 24890979 (Version 1)
Quarter: 2025Q1

REPORT INFORMATION
  Report Type: Spontaneous
  Country: US (occurrence: None)
  Receive Date: 20250127
  Receipt Date: 20250127
  Transmission Date: 20250408
  Serious: Yes (Other)
  Sender: FDA-CTU
  Company Number: None

PATIENT
  Age: 7 Year
  Sex: Male
  Weight: 26.1 kg

DRUGS (1)
  1. SPIRIVA RESPIMAT [Suspect]
     Active Substance: TIOTROPIUM BROMIDE
     Indication: Asthma
     Dosage: OTHER STRENGTH : N/A;?OTHER QUANTITY : 2 PUFF(S);?FREQUENCY : TWICE A DAY;?
     Route: 055
     Dates: start: 20250126, end: 20250126

REACTIONS (1)
  - Bronchospasm paradoxical [None]

NARRATIVE: CASE EVENT DATE: 20250126
